FAERS Safety Report 7427813-6 (Version None)
Quarter: 2011Q2

REPORT INFORMATION
  Report Type: 
  Country: None (occurrence: None)
  Receive Date: 20110421
  Receipt Date: 20101001
  Transmission Date: 20111010
  Serious: Yes (Other)
  Sender: FDA-Public Use
  Company Number: US-BAYER-201026773NA

PATIENT
  Sex: Female
  Weight: 54.422 kg

DRUGS (9)
  1. YAZ [Suspect]
  2. FLEXERIL [Concomitant]
     Dosage: 10 MG, PRN
  3. DOXYCYCLINE [Concomitant]
     Dosage: UNK
     Dates: start: 19980101
  4. YAZ [Suspect]
     Indication: PREMENSTRUAL SYNDROME
     Dosage: UNK
     Route: 048
  5. ALBUTEROL [Concomitant]
     Dosage: UNK
     Dates: start: 20040101
  6. TYLENOL W/ CODEINE NO. 3 [Concomitant]
     Dosage: 650 MG, PRN
  7. AMOXICILLIN [Concomitant]
  8. TOPAMAX [Concomitant]
     Indication: MIGRAINE
     Dosage: 25 MG, BID
     Dates: start: 20070901
  9. NAPROSYN [Concomitant]
     Dosage: UNK UNK, PRN
     Dates: start: 20000101, end: 20010101

REACTIONS (5)
  - CHOLECYSTITIS CHRONIC [None]
  - PAIN [None]
  - GALLBLADDER DISORDER [None]
  - DIARRHOEA [None]
  - BILIARY DYSKINESIA [None]
